FAERS Safety Report 6998934-7 (Version None)
Quarter: 2010Q3

REPORT INFORMATION
  Report Type: 
  Country: None (occurrence: None)
  Receive Date: 20100920
  Receipt Date: 20070918
  Transmission Date: 20110219
  Serious: Yes (Other)
  Sender: FDA-Public Use
  Company Number: US-ASTRAZENECA-2007UW15786

PATIENT
  Age: 467 Month
  Sex: Female
  Weight: 106.6 kg

DRUGS (8)
  1. SEROQUEL [Suspect]
     Indication: BIPOLAR DISORDER
     Dosage: 25-200 MG
     Route: 048
     Dates: start: 20020319
  2. SEROQUEL [Suspect]
     Indication: DEPRESSION
     Dosage: 25-200 MG
     Route: 048
     Dates: start: 20020319
  3. SEROQUEL [Suspect]
     Route: 048
     Dates: start: 20030801, end: 20060201
  4. SEROQUEL [Suspect]
     Route: 048
     Dates: start: 20030801, end: 20060201
  5. TRAZODONE HCL [Concomitant]
     Dates: start: 20020131
  6. NEURONTIN [Concomitant]
     Dosage: 600-4000 MG
     Dates: start: 20020131
  7. ARTANE [Concomitant]
     Dates: start: 20020430
  8. TOPAMAX [Concomitant]
     Dosage: 50-200 MG
     Dates: start: 20020605

REACTIONS (3)
  - DIABETES MELLITUS [None]
  - DIABETIC KETOACIDOSIS [None]
  - TYPE 2 DIABETES MELLITUS [None]
